FAERS Safety Report 9850025 (Version 1)
Quarter: 2014Q1

REPORT INFORMATION
  Report Type: Spontaneous
  Country: US (occurrence: US)
  Receive Date: 20140128
  Receipt Date: 20140128
  Transmission Date: 20141002
  Serious: Yes (Death, Hospitalization)
  Sender: FDA-Public Use
  Company Number: US-CUBIST PHARMACEUTICAL, INC.-2014CBST000050

PATIENT
  Sex: 0

DRUGS (4)
  1. CUBICIN [Suspect]
     Indication: EVIDENCE BASED TREATMENT
     Dosage: UNK UNK, UNK
     Route: 065
  2. CUBICIN [Suspect]
     Indication: OFF LABEL USE
  3. CEFEPIME [Concomitant]
     Indication: EVIDENCE BASED TREATMENT
     Dosage: UNK UNK, UNK
     Route: 065
  4. METRONIDAZOLE [Concomitant]
     Indication: EVIDENCE BASED TREATMENT
     Dosage: UNK UNK, UNK
     Route: 065

REACTIONS (2)
  - Nasal sinus cancer [Fatal]
  - Mental status changes [Recovering/Resolving]
